FAERS Safety Report 24190984 (Version 1)
Quarter: 2024Q3

REPORT INFORMATION
  Report Type: Spontaneous
  Country: FR (occurrence: FR)
  Receive Date: 20240808
  Receipt Date: 20240808
  Transmission Date: 20241017
  Serious: Yes (Hospitalization, Other)
  Sender: MYLAN
  Company Number: None

PATIENT
  Age: 25 Year
  Sex: Male

DRUGS (3)
  1. LYRICA [Suspect]
     Active Substance: PREGABALIN
     Indication: Product used for unknown indication
     Dosage: 300 MILLIGRAM, QD ((PROGRESSIVE TAPERING TO 300 MG/DAY))
     Route: 065
     Dates: start: 20240517
  2. LYRICA [Suspect]
     Active Substance: PREGABALIN
     Dosage: 1200 MILLIGRAM, QD (UP TO 1200 MG/DAY WITH A TAPERING PERIOD IN MAY 2024)
     Route: 065
     Dates: start: 2018, end: 20240516
  3. COCAINE [Suspect]
     Active Substance: COCAINE
     Indication: Product used for unknown indication
     Dosage: UNK
     Route: 045
     Dates: end: 20240516

REACTIONS (3)
  - Drug use disorder [Recovered/Resolved]
  - Substance use disorder [Recovered/Resolved]
  - Generalised tonic-clonic seizure [Recovered/Resolved]

NARRATIVE: CASE EVENT DATE: 20180101
